FAERS Safety Report 21888168 (Version 4)
Quarter: 2024Q1

REPORT INFORMATION
  Report Type: Spontaneous
  Country: FR (occurrence: FR)
  Receive Date: 20230120
  Receipt Date: 20240301
  Transmission Date: 20240410
  Serious: Yes (Death, Life-Threatening, Other)
  Sender: FDA-Public Use
  Company Number: FR-SUN PHARMACEUTICAL INDUSTRIES LTD-2023RR-373929

PATIENT
  Age: 30 Year
  Sex: Male

DRUGS (17)
  1. BUPRENORPHINE [Suspect]
     Active Substance: BUPRENORPHINE
     Indication: Product used for unknown indication
     Dosage: 2.5 NG/ML, UNK
     Route: 065
  2. BUPRENORPHINE [Suspect]
     Active Substance: BUPRENORPHINE
     Route: 045
  3. PREGABALIN [Interacting]
     Active Substance: PREGABALIN
     Indication: Product used for unknown indication
     Dosage: 4900 NG/ML, UNK
     Route: 065
  4. PREGABALIN [Suspect]
     Active Substance: PREGABALIN
     Indication: Product used for unknown indication
     Route: 065
  5. DIAZEPAM [Suspect]
     Active Substance: DIAZEPAM
     Indication: Product used for unknown indication
     Route: 065
  6. DIAZEPAM [Interacting]
     Active Substance: DIAZEPAM
     Indication: Product used for unknown indication
     Dosage: 51 NG/ML, UNK
     Route: 065
  7. NORDAZEPAM [Suspect]
     Active Substance: NORDAZEPAM
     Indication: Product used for unknown indication
     Route: 065
  8. CLONAZEPAM [Suspect]
     Active Substance: CLONAZEPAM
     Indication: Product used for unknown indication
     Route: 065
  9. OXAZEPAM [Suspect]
     Active Substance: OXAZEPAM
     Indication: Product used for unknown indication
     Route: 065
  10. OXAZEPAM [Interacting]
     Active Substance: OXAZEPAM
     Indication: Product used for unknown indication
     Dosage: 7 NG/ML, UNK
     Route: 065
  11. NORBUPRENORPHINE [Concomitant]
     Active Substance: NORBUPRENORPHINE
     Indication: Product used for unknown indication
     Dosage: 2.5 NG/ML
     Route: 065
  12. 7-AMINOCLONAZEPAM [Concomitant]
     Active Substance: 7-AMINOCLONAZEPAM
     Indication: Product used for unknown indication
     Dosage: 14 NG / ML
     Route: 065
  13. NORDAZEPAM [Concomitant]
     Active Substance: NORDAZEPAM
     Indication: Product used for unknown indication
     Dosage: 137 NG/ML
     Route: 065
  14. COCAINE [Concomitant]
     Active Substance: COCAINE
     Indication: Product used for unknown indication
     Dosage: 4 NG / ML
     Route: 065
  15. BENZOYLECGONINE [Concomitant]
     Active Substance: BENZOYLECGONINE
     Indication: Product used for unknown indication
     Dosage: 177 NG/ML
     Route: 065
  16. ECGONINE METHYL ESTER [Concomitant]
     Active Substance: ECGONINE METHYL ESTER
     Indication: Product used for unknown indication
     Dosage: 33 NG/ML
     Route: 065
  17. 11-NOR-9-CARBOXY-.DELTA-9-TETRAHYDROCANNABINOL [Concomitant]
     Active Substance: 11-NOR-9-CARBOXY-.DELTA-9-TETRAHYDROCANNABINOL
     Indication: Product used for unknown indication
     Dosage: 4 NG / ML
     Route: 065

REACTIONS (6)
  - Drug abuse [Unknown]
  - Drug interaction [Unknown]
  - Visceral congestion [Fatal]
  - Drug abuse [Fatal]
  - Pulmonary oedema [Fatal]
  - Brain oedema [Fatal]
